FAERS Safety Report 8090844-X (Version None)
Quarter: 2012Q1

REPORT INFORMATION
  Report Type: 
  Country: None (occurrence: None)
  Receive Date: 20120125
  Receipt Date: 20120110
  Transmission Date: 20120608
  Serious: Yes (Other)
  Sender: FDA-Public Use
  Company Number: US-1189112

PATIENT
  Sex: Male
  Weight: 95.2554 kg

DRUGS (9)
  1. NEVANAC [Suspect]
     Indication: CATARACT OPERATION
     Dosage: (OPHTHALMIC)
     Route: 047
  2. BSS [Suspect]
     Indication: CATARACT OPERATION
     Dosage: (INTRAOCULAR), (INTRAOCULAR)
     Route: 031
     Dates: start: 20111115, end: 20111115
  3. BSS [Suspect]
     Indication: CATARACT OPERATION
     Dosage: (INTRAOCULAR), (INTRAOCULAR)
     Route: 031
     Dates: start: 20111115, end: 20111115
  4. VIGAMOX [Suspect]
     Indication: CATARACT OPERATION
     Dosage: (OPHTHALMIC)
     Route: 047
  5. TETRACAINE POLYGYL STERILE OPHTHALMIC SOLUTION [Suspect]
     Indication: CATARACT OPERATION
     Dosage: (OPHTHALMIC)
     Route: 047
     Dates: start: 20111115, end: 20111115
  6. BSS [Suspect]
  7. DUREZOL [Suspect]
     Indication: CATARACT OPERATION
     Dosage: (OPHTHALMIC)
     Route: 047
  8. DEXAMETHASONE TAB [Concomitant]
  9. POVIDONE IODINE [Concomitant]

REACTIONS (4)
  - BACTERIAL INFECTION [None]
  - TOXIC ANTERIOR SEGMENT SYNDROME [None]
  - WRONG TECHNIQUE IN DRUG USAGE PROCESS [None]
  - OFF LABEL USE [None]
